FAERS Safety Report 5759018-9 (Version None)
Quarter: 2008Q2

REPORT INFORMATION
  Report Type: 
  Country: None (occurrence: None)
  Receive Date: 20080604
  Receipt Date: 20080526
  Transmission Date: 20081010
  Serious: Yes (Life-Threatening, Other)
  Sender: FDA-Public Use
  Company Number: JP-PFIZER INC-2008040362

PATIENT
  Sex: Male
  Weight: 48.1 kg

DRUGS (14)
  1. LIPITOR [Suspect]
     Indication: HYPERCHOLESTEROLAEMIA
     Route: 048
     Dates: start: 20080402, end: 20080405
  2. LASIX [Concomitant]
     Route: 048
  3. VALSARTAN [Concomitant]
     Route: 048
  4. LANSOPRAZOLE [Concomitant]
     Route: 048
  5. ALLOPURINOL [Concomitant]
     Route: 048
  6. ASPIRIN [Concomitant]
     Route: 048
  7. TICLOPIDINE HCL [Concomitant]
     Route: 048
  8. CARVEDILOL [Concomitant]
     Route: 048
  9. CALCIUM POLYSTYRENE SULFONATE [Concomitant]
     Route: 048
  10. NORVASC [Concomitant]
     Route: 048
  11. GLUCOBAY [Concomitant]
     Route: 048
     Dates: start: 20060726
  12. PENFILL R [Concomitant]
     Route: 058
  13. KREMEZIN [Concomitant]
     Route: 048
  14. EPOGIN [Concomitant]
     Route: 058

REACTIONS (4)
  - ASTHENIA [None]
  - BEDRIDDEN [None]
  - MYOPATHY [None]
  - RHABDOMYOLYSIS [None]
